FAERS Safety Report 12724814 (Version 1)
Quarter: 2016Q3

REPORT INFORMATION
  Report Type: Spontaneous
  Country: AU (occurrence: AU)
  Receive Date: 20160908
  Receipt Date: 20160908
  Transmission Date: 20161109
  Serious: Yes (Other)
  Sender: FDA-Public Use
  Company Number: AU-009507513-1609AUS000542

PATIENT
  Sex: Female

DRUGS (3)
  1. PROVERA [Interacting]
     Active Substance: MEDROXYPROGESTERONE ACETATE
     Indication: MENORRHAGIA
     Dosage: 5 MG, UNK
  2. AVANZA [Suspect]
     Active Substance: MIRTAZAPINE
     Dosage: UNK
  3. CIPRAMIL [Interacting]
     Active Substance: CITALOPRAM HYDROBROMIDE
     Dosage: UNK

REACTIONS (7)
  - Irritability [Unknown]
  - Concomitant disease aggravated [Unknown]
  - Suicidal ideation [Unknown]
  - Premenstrual syndrome [Unknown]
  - Pain in extremity [Unknown]
  - Syncope [Unknown]
  - Anaemia [Unknown]

NARRATIVE: CASE EVENT DATE: 2002
